FAERS Safety Report 24593786 (Version 1)
Quarter: 2024Q4

REPORT INFORMATION
  Report Type: Spontaneous
  Country: CN (occurrence: CN)
  Receive Date: 20241108
  Receipt Date: 20241108
  Transmission Date: 20250115
  Serious: Yes (Hospitalization)
  Sender: PFIZER
  Company Number: CN-PFIZER INC-PV202400143203

PATIENT
  Age: 62 Year
  Sex: Female
  Weight: 52 kg

DRUGS (2)
  1. CYTARABINE [Suspect]
     Active Substance: CYTARABINE
     Indication: Acute leukaemia
     Dosage: 0.1 G, 2X/DAY
     Route: 058
     Dates: start: 20240928, end: 20241011
  2. VORICONAZOLE [Concomitant]
     Active Substance: VORICONAZOLE
     Indication: Infection
     Dosage: 0.2 G, 2X/DAY
     Route: 041
     Dates: start: 20241006, end: 20241017

REACTIONS (8)
  - Agranulocytosis [Recovering/Resolving]
  - Hallucination [Recovering/Resolving]
  - Infection [Recovering/Resolving]
  - Night sweats [Recovering/Resolving]
  - Procalcitonin increased [Unknown]
  - Red blood cell count decreased [Recovering/Resolving]
  - Haemoglobin decreased [Recovering/Resolving]
  - Platelet count decreased [Recovering/Resolving]

NARRATIVE: CASE EVENT DATE: 20241001
